FAERS Safety Report 11459218 (Version 1)
Quarter: 2015Q3

REPORT INFORMATION
  Report Type: Spontaneous
  Country: IL (occurrence: IL)
  Receive Date: 20150904
  Receipt Date: 20150904
  Transmission Date: 20151125
  Serious: Yes (Death)
  Sender: FDA-Public Use
  Company Number: IL-KAMADA LIMITED-2015IL007779

PATIENT

DRUGS (6)
  1. PSORALEN [Concomitant]
     Active Substance: PSORALEN
  2. SIROLIMUS. [Concomitant]
     Active Substance: SIROLIMUS
  3. GLASSIA [Suspect]
     Active Substance: .ALPHA.1-PROTEINASE INHIBITOR HUMAN
     Indication: GRAFT VERSUS HOST DISEASE
     Dosage: 90 MG/KG
  4. SOLU-MEDROL [Concomitant]
     Active Substance: METHYLPREDNISOLONE SODIUM SUCCINATE
  5. CYCLOSPORIN A [Concomitant]
     Active Substance: CYCLOSPORINE
  6. GLASSIA [Suspect]
     Active Substance: .ALPHA.1-PROTEINASE INHIBITOR HUMAN
     Dosage: 60 MG/KG, UNK

REACTIONS (2)
  - Off label use [Unknown]
  - Death [Fatal]
